FAERS Safety Report 7341707-6 (Version None)
Quarter: 2011Q1

REPORT INFORMATION
  Report Type: 
  Country: None (occurrence: None)
  Receive Date: 20110309
  Receipt Date: 20100124
  Transmission Date: 20110831
  Serious: Yes (Death, Hospitalization, Other)
  Sender: FDA-Public Use
  Company Number: US-BAYER-201012135NA

PATIENT
  Sex: Male
  Weight: 180 kg

DRUGS (11)
  1. ZOCOR [Concomitant]
     Indication: PRODUCT USED FOR UNKNOWN INDICATION
     Route: 048
  2. LOVENOX [Concomitant]
     Indication: PRODUCT USED FOR UNKNOWN INDICATION
     Dosage: UNK
     Route: 058
     Dates: end: 20020808
  3. LOPRESSOR [Concomitant]
     Indication: PRODUCT USED FOR UNKNOWN INDICATION
     Dosage: 50 MG, BID
     Route: 048
  4. TRIDIL [Concomitant]
     Indication: PRODUCT USED FOR UNKNOWN INDICATION
     Route: 048
  5. TRASYLOL [Suspect]
     Indication: CORONARY ARTERY BYPASS
     Dosage: 100CC/HR FOR 200CC, THEN CONTINUED AT 50CC/HR
     Route: 042
     Dates: start: 20020626, end: 20020626
  6. NITROGLYCERIN [Concomitant]
     Indication: CORONARY ARTERY BYPASS
     Dosage: APPROX.12CC
     Route: 042
     Dates: start: 20020626, end: 20020626
  7. ATENOLOL [Concomitant]
     Indication: PRODUCT USED FOR UNKNOWN INDICATION
     Dosage: 50 MG, UNK
     Route: 048
     Dates: start: 19920101
  8. TRIDIL [Concomitant]
     Indication: CORONARY ARTERY BYPASS
     Dosage: TITRATE
     Dates: start: 20020626, end: 20020626
  9. IBUPROFEN [Concomitant]
     Indication: SPONDYLITIS
     Dosage: UNK
     Route: 048
     Dates: start: 19920101
  10. LEVOTHYROXINE [Concomitant]
     Indication: PRODUCT USED FOR UNKNOWN INDICATION
     Route: 048
  11. ANCEF [Concomitant]
     Indication: CORONARY ARTERY BYPASS
     Dosage: 2 G, UNK
     Route: 042
     Dates: start: 20020626, end: 20020626

REACTIONS (14)
  - MULTI-ORGAN FAILURE [None]
  - CEREBROVASCULAR ACCIDENT [None]
  - RENAL IMPAIRMENT [None]
  - STRESS [None]
  - INJURY [None]
  - RENAL FAILURE [None]
  - RENAL INJURY [None]
  - DEATH [None]
  - MYOCARDIAL INFARCTION [None]
  - EMOTIONAL DISTRESS [None]
  - FEAR [None]
  - PAIN [None]
  - ANXIETY [None]
  - UNEVALUABLE EVENT [None]
